FAERS Safety Report 8169897-6 (Version None)
Quarter: 2012Q1

REPORT INFORMATION
  Report Type: 
  Country: None (occurrence: None)
  Receive Date: 20120228
  Receipt Date: 20120227
  Transmission Date: 20120608
  Serious: Yes (Other)
  Sender: FDA-Public Use
  Company Number: US-PFIZER INC-2012051643

PATIENT
  Sex: Female

DRUGS (8)
  1. ACCUPRIL [Concomitant]
     Dosage: UNK
  2. ZOLOFT [Concomitant]
     Dosage: UNK
  3. CHANTIX [Suspect]
     Dosage: UNK
  4. CORDARONE [Concomitant]
     Dosage: UNK
  5. XANAX [Concomitant]
     Dosage: UNK
  6. GLUCOTROL XL [Concomitant]
     Dosage: UNK
  7. ALDACTONE [Concomitant]
     Dosage: UNK
  8. LIPITOR [Concomitant]
     Dosage: UNK

REACTIONS (6)
  - CARDIAC DISORDER [None]
  - HYPERTENSION [None]
  - NIGHTMARE [None]
  - HEART RATE DECREASED [None]
  - DIABETES MELLITUS [None]
  - NAUSEA [None]
